FAERS Safety Report 6400722-7 (Version None)
Quarter: 2009Q4

REPORT INFORMATION
  Report Type: 
  Country: None (occurrence: None)
  Receive Date: 20091014
  Receipt Date: 20090929
  Transmission Date: 20100525
  Serious: Yes (Death, Other)
  Sender: FDA-Public Use
  Company Number: SK-GENENTECH-292254

PATIENT
  Age: 58 Year
  Sex: Female

DRUGS (3)
  1. AVASTIN [Suspect]
     Indication: LUNG ADENOCARCINOMA
     Dosage: 15 MG/M2, UNK
     Dates: start: 20090403, end: 20090709
  2. CARBOPLATIN [Concomitant]
     Indication: DRUG USE FOR UNKNOWN INDICATION
     Dosage: UNK
     Dates: start: 20090403, end: 20090709
  3. TAXOL [Concomitant]
     Indication: DRUG USE FOR UNKNOWN INDICATION
     Dosage: UNK
     Dates: start: 20090403, end: 20090709

REACTIONS (4)
  - BRONCHOPNEUMONIA [None]
  - DEATH [None]
  - FEBRILE NEUTROPENIA [None]
  - HAEMOPTYSIS [None]
